FAERS Safety Report 10951151 (Version 1)
Quarter: 2015Q1

REPORT INFORMATION
  Report Type: Spontaneous
  Country: US (occurrence: US)
  Receive Date: 20150324
  Receipt Date: 20150324
  Transmission Date: 20150721
  Serious: Yes (Other)
  Sender: FDA-Public Use
  Company Number: US-BAYER-2015-060331

PATIENT
  Age: 32 Year
  Sex: Female

DRUGS (1)
  1. YAZ [Suspect]
     Active Substance: DROSPIRENONE\ETHINYL ESTRADIOL
     Indication: POLYCYSTIC OVARIES
     Dosage: UNK
     Dates: start: 2010

REACTIONS (2)
  - Coeliac disease [None]
  - Off label use [None]

NARRATIVE: CASE EVENT DATE: 2010
